FAERS Safety Report 5371398-5 (Version None)
Quarter: 2007Q2

REPORT INFORMATION
  Report Type: 
  Country: None (occurrence: None)
  Receive Date: 20070615
  Receipt Date: 20070311
  Transmission Date: 20071010
  Serious: Yes (Other)
  Sender: FDA-Public Use
  Company Number: 200711715US

PATIENT
  Age: 73 Year
  Sex: Female

DRUGS (10)
  1. LANTUS [Suspect]
     Indication: DIABETES MELLITUS NON-INSULIN-DEPENDENT
     Dosage: 10 U INJ
     Dates: start: 20070201
  2. OPTICLIK [Suspect]
     Indication: DIABETES MELLITUS NON-INSULIN-DEPENDENT
     Dates: start: 20070201
  3. VALPROATE SODIUM (VALTRIL) [Concomitant]
  4. SIMVASTATIN [Concomitant]
  5. METOCLOPRAMIDE [Concomitant]
  6. METFORMIN HCL [Concomitant]
  7. DIABETA [Concomitant]
  8. ADENOSINE (TRICOR /00090101/) [Concomitant]
  9. TOLTERODINE L-TARTRATE (DETROL LA) [Concomitant]
  10. AVANDIA [Concomitant]

REACTIONS (4)
  - BLOOD GLUCOSE DECREASED [None]
  - BLOOD GLUCOSE INCREASED [None]
  - DRUG INEFFECTIVE [None]
  - HYPOGLYCAEMIA [None]
